FAERS Safety Report 7815591-8 (Version None)
Quarter: 2011Q4

REPORT INFORMATION
  Report Type: 
  Country: None (occurrence: None)
  Receive Date: 20111012
  Receipt Date: 20111001
  Transmission Date: 20120403
  Serious: Yes (Hospitalization)
  Sender: FDA-Public Use
  Company Number: MYVW-NO-1110S-0148

PATIENT
  Age: 50 Year
  Sex: Male

DRUGS (2)
  1. MYOVIEW [Suspect]
     Indication: RADIOISOTOPE SCAN
     Dosage: 722.3 BQ, SINGLE DOSE, INTRAVENOUS
     Route: 042
     Dates: start: 20110914, end: 20110914
  2. TECHNETIUM 99 M GENERATOR (SODIUM PERTECHNETATE TC99M) [Concomitant]

REACTIONS (1)
  - CHEST PAIN [None]
